FAERS Safety Report 5972911-7 (Version None)
Quarter: 2008Q4

REPORT INFORMATION
  Report Type: 
  Country: None (occurrence: None)
  Receive Date: 20081201
  Receipt Date: 20081119
  Transmission Date: 20090506
  Serious: Yes (Other)
  Sender: FDA-Public Use
  Company Number: PHHY2008GB28792

PATIENT
  Age: 47 Year
  Sex: Male

DRUGS (2)
  1. CLOZAPINE [Suspect]
  2. ZAPONEX [Suspect]

REACTIONS (3)
  - LEUKOPENIA [None]
  - NEUTROPENIA [None]
  - PANCYTOPENIA [None]
